FAERS Safety Report 11915480 (Version 1)
Quarter: 2016Q1

REPORT INFORMATION
  Report Type: Spontaneous
  Country: US (occurrence: None)
  Receive Date: 20160113
  Receipt Date: 20160113
  Transmission Date: 20160526
  Serious: Yes (Other)
  Sender: FDA-Public Use
  Company Number: None

PATIENT
  Age: 7 Year
  Sex: Male
  Weight: 31 kg

DRUGS (1)
  1. GADAVIST [Suspect]
     Active Substance: GADOBUTROL
     Indication: OSTEOMYELITIS
     Dosage: 0.1 ML /KG,  3.1 ML
     Route: 042
     Dates: start: 20160109, end: 20160109

REACTIONS (3)
  - Urticaria [None]
  - Swelling face [None]
  - Contrast media allergy [None]

NARRATIVE: CASE EVENT DATE: 20160109
